FAERS Safety Report 6159528-9 (Version None)
Quarter: 2009Q2

REPORT INFORMATION
  Report Type: 
  Country: None (occurrence: None)
  Receive Date: 20090416
  Receipt Date: 20090416
  Transmission Date: 20091009
  Serious: Yes (Other)
  Sender: FDA-Public Use
  Company Number: None

PATIENT
  Sex: Male
  Weight: 117.9352 kg

DRUGS (1)
  1. DIGOXIN [Suspect]
     Indication: HEART RATE ABNORMAL
     Dosage: .25 MG TABLET ONCE A DAY ORAL
     Route: 048

REACTIONS (8)
  - CHILLS [None]
  - DIZZINESS [None]
  - DRY MOUTH [None]
  - FEELING COLD [None]
  - HEADACHE [None]
  - NAUSEA [None]
  - VISION BLURRED [None]
  - VISUAL IMPAIRMENT [None]
